FAERS Safety Report 15130194 (Version 1)
Quarter: 2018Q3

REPORT INFORMATION
  Report Type: Spontaneous
  Country: TR (occurrence: TR)
  Receive Date: 20180711
  Receipt Date: 20180711
  Transmission Date: 20181010
  Serious: Yes (Hospitalization)
  Sender: FDA-Public Use
  Company Number: PHHY2018TR043343

PATIENT
  Age: 39 Year
  Sex: Female

DRUGS (1)
  1. FINGYA [Suspect]
     Active Substance: FINGOLIMOD
     Indication: MULTIPLE SCLEROSIS
     Dosage: UNK
     Route: 065
     Dates: start: 2011, end: 2017

REACTIONS (2)
  - Cervical dysplasia [Recovered/Resolved with Sequelae]
  - Cervix disorder [Unknown]

NARRATIVE: CASE EVENT DATE: 2014
